FAERS Safety Report 11912840 (Version 1)
Quarter: 2016Q1

REPORT INFORMATION
  Report Type: Spontaneous
  Country: US (occurrence: None)
  Receive Date: 20160112
  Receipt Date: 20160112
  Transmission Date: 20160526
  Serious: No
  Sender: FDA-Public Use
  Company Number: None

PATIENT
  Age: 47 Year
  Sex: Female
  Weight: 77.11 kg

DRUGS (7)
  1. LUNESTA [Suspect]
     Active Substance: ESZOPICLONE
     Indication: INITIAL INSOMNIA
     Dosage: 1 Q NIGHT
     Route: 048
     Dates: start: 20160103, end: 20160111
  2. TRAMADOL. [Concomitant]
     Active Substance: TRAMADOL
  3. TIZANADINE [Concomitant]
  4. GABAPENTIN. [Concomitant]
     Active Substance: GABAPENTIN
  5. K2D3 VIRAMIN [Concomitant]
  6. MULTIVITAMIN BONE AND JOINT [Concomitant]
  7. BECONASE AQ [Concomitant]
     Active Substance: BECLOMETHASONE DIPROPIONATE MONOHYDRATE

REACTIONS (4)
  - Dysgeusia [None]
  - Product taste abnormal [None]
  - Decreased appetite [None]
  - Product coating issue [None]

NARRATIVE: CASE EVENT DATE: 20160103
